FAERS Safety Report 21199465 (Version 6)
Quarter: 2024Q2

REPORT INFORMATION
  Report Type: Report from Study
  Country: CA (occurrence: CA)
  Receive Date: 20220811
  Receipt Date: 20240419
  Transmission Date: 20240716
  Serious: Yes (Other)
  Sender: FDA-Public Use
  Company Number: CA-ABBVIE-22K-028-4427968-00

PATIENT
  Sex: Female

DRUGS (4)
  1. RINVOQ [Suspect]
     Active Substance: UPADACITINIB
     Indication: Dermatitis atopic
     Dosage: FORM STRENGTH: 30MG
     Route: 048
     Dates: start: 202111, end: 20220607
  2. RINVOQ [Suspect]
     Active Substance: UPADACITINIB
     Indication: Dermatitis atopic
     Dosage: FORM STRENGTH: 30 MG
     Route: 048
     Dates: start: 2022
  3. RINVOQ [Suspect]
     Active Substance: UPADACITINIB
     Indication: Dermatitis atopic
     Dosage: FORM STRENGTH: 30MG
     Route: 048
     Dates: start: 202207, end: 2022
  4. RINVOQ [Suspect]
     Active Substance: UPADACITINIB
     Indication: Dermatitis atopic
     Route: 048
     Dates: start: 202206, end: 202207

REACTIONS (20)
  - Drug dependence [Recovered/Resolved]
  - Erythema of eyelid [Unknown]
  - Rash erythematous [Unknown]
  - Eye swelling [Recovered/Resolved]
  - Skin ulcer [Unknown]
  - Wound secretion [Recovered/Resolved]
  - Lacrimation increased [Recovered/Resolved]
  - Skin burning sensation [Not Recovered/Not Resolved]
  - Skin disorder [Recovered/Resolved]
  - Visual impairment [Unknown]
  - Swelling face [Recovered/Resolved]
  - Inappropriate schedule of product administration [Unknown]
  - Eye pruritus [Not Recovered/Not Resolved]
  - Eye swelling [Not Recovered/Not Resolved]
  - Drug ineffective [Unknown]
  - Herpes virus infection [Recovering/Resolving]
  - Blister [Unknown]
  - Facial pain [Unknown]
  - Rash macular [Recovering/Resolving]
  - Head injury [Unknown]

NARRATIVE: CASE EVENT DATE: 20220101
